FAERS Safety Report 13014273 (Version 2)
Quarter: 2017Q1

REPORT INFORMATION
  Report Type: Spontaneous
  Country: DE (occurrence: DE)
  Receive Date: 20161209
  Receipt Date: 20170102
  Transmission Date: 20170428
  Serious: Yes (Death, Hospitalization, Other)
  Sender: FDA-Public Use
  Company Number: DE-BRISTOL-MYERS SQUIBB COMPANY-BMS-2016-101968

PATIENT
  Age: 72 Year
  Sex: Female
  Weight: 61 kg

DRUGS (2)
  1. PARACETAMOL [Concomitant]
     Active Substance: ACETAMINOPHEN
     Indication: PAIN
     Dosage: 500 MG, TID
     Route: 065
     Dates: start: 201607
  2. NIVOLUMAB [Suspect]
     Active Substance: NIVOLUMAB
     Indication: NON-SMALL CELL LUNG CANCER
     Dosage: 3 MG/KG, 3 CYCLES
     Route: 042
     Dates: start: 201606, end: 20160720

REACTIONS (2)
  - Acute hepatic failure [Fatal]
  - Acute kidney injury [Unknown]

NARRATIVE: CASE EVENT DATE: 201608
